FAERS Safety Report 4991495-3 (Version None)
Quarter: 2006Q2

REPORT INFORMATION
  Report Type: 
  Country: None (occurrence: None)
  Receive Date: 20060502
  Receipt Date: 20060419
  Transmission Date: 20061013
  Serious: Yes (Other)
  Sender: FDA-Public Use
  Company Number: 2006BH008412

PATIENT
  Age: 72 Year
  Sex: Female

DRUGS (1)
  1. ADENOSINE  SYRINGE (ADENOSINE) [Suspect]
     Indication: PALPITATIONS
     Dosage: 6 MG

REACTIONS (2)
  - ATRIAL FIBRILLATION [None]
  - SUPRAVENTRICULAR TACHYCARDIA [None]
